FAERS Safety Report 24120581 (Version 1)
Quarter: 2024Q3

REPORT INFORMATION
  Report Type: Spontaneous
  Country: US (occurrence: US)
  Receive Date: 20240722
  Receipt Date: 20240722
  Transmission Date: 20241016
  Serious: No
  Sender: LYNE LABORATORIES
  Company Number: US-Lyne Laboratories Inc.-2159305

PATIENT
  Age: 23 Month
  Sex: Male
  Weight: 8.6364 kg

DRUGS (1)
  1. CYPROHEPTADINE HYDROCHLORIDE [Suspect]
     Active Substance: CYPROHEPTADINE HYDROCHLORIDE
     Indication: Increased appetite
     Route: 048
     Dates: start: 20230430, end: 20240128

REACTIONS (4)
  - Somnolence [Recovered/Resolved]
  - Constipation [Recovered/Resolved]
  - Vision blurred [Recovered/Resolved]
  - Dizziness [Recovered/Resolved]

NARRATIVE: CASE EVENT DATE: 20230801
